FAERS Safety Report 6808001-0 (Version None)
Quarter: 2010Q2

REPORT INFORMATION
  Report Type: 
  Country: None (occurrence: None)
  Receive Date: 20100629
  Receipt Date: 20090202
  Transmission Date: 20101027
  Serious: No
  Sender: FDA-Public Use
  Company Number: US-PFIZER INC-2009166325

PATIENT
  Sex: Female

DRUGS (2)
  1. ZYVOX [Suspect]
     Indication: CYSTITIS
  2. CEFADROXIL [Suspect]
     Indication: CYSTITIS

REACTIONS (1)
  - ADVERSE DRUG REACTION [None]
